FAERS Safety Report 4860801-2 (Version None)
Quarter: 2005Q4

REPORT INFORMATION
  Report Type: 
  Country: None (occurrence: None)
  Receive Date: 20051216
  Receipt Date: 20051216
  Transmission Date: 20060501
  Serious: Yes (Hospitalization)
  Sender: FDA-Public Use
  Company Number: None

PATIENT
  Sex: Female
  Weight: 69.3 kg

DRUGS (1)
  1. ORTHO NOVUM 2/50 21 TAB [Suspect]
     Indication: CONTRACEPTION
     Dosage: 1 TAB    QDAY   PO
     Route: 048

REACTIONS (4)
  - HEADACHE [None]
  - NAUSEA [None]
  - THROMBOSIS [None]
  - VOMITING [None]
